APPROVED DRUG PRODUCT: LOXITANE
Active Ingredient: LOXAPINE SUCCINATE
Strength: EQ 10MG BASE **Federal Register determination that product was discontinued or withdrawn for s or e reasons**
Dosage Form/Route: TABLET;ORAL
Application: N017525 | Product #006
Applicant: TEVA BRANDED PHARMACEUTICAL PRODUCTS R AND D INC
Approved: Approved Prior to Jan 1, 1982 | RLD: Yes | RS: No | Type: DISCN